FAERS Safety Report 7183680-X (Version None)
Quarter: 2010Q4

REPORT INFORMATION
  Report Type: 
  Country: None (occurrence: None)
  Receive Date: 20101210
  Receipt Date: 20101206
  Transmission Date: 20110411
  Serious: Yes (Hospitalization, Other)
  Sender: FDA-Public Use
  Company Number: 20109027

PATIENT
  Sex: Male

DRUGS (1)
  1. LIORESAL [Suspect]
     Indication: MUSCLE SPASTICITY
     Dosage: 275 MCG, DAILY, INTRATHECAL
     Route: 037

REACTIONS (2)
  - CATHETER REMOVAL [None]
  - CATHETER SITE INFECTION [None]
